FAERS Safety Report 13423203 (Version 1)
Quarter: 2017Q2

REPORT INFORMATION
  Report Type: Spontaneous
  Country: BR (occurrence: BR)
  Receive Date: 20170410
  Receipt Date: 20170410
  Transmission Date: 20170830
  Serious: Yes (Other)
  Sender: FDA-Public Use
  Company Number: BR-009507513-1503BRA009345

PATIENT
  Sex: Female
  Weight: 81 kg

DRUGS (3)
  1. NUVARING [Suspect]
     Active Substance: ETHINYL ESTRADIOL\ETONOGESTREL
     Indication: CONTRACEPTION
     Dosage: 1 DF, QM/3 WEEKS OF USE AND 1 WEEK OF PAUSE
     Route: 067
     Dates: start: 2013
  2. NUVARING [Suspect]
     Active Substance: ETHINYL ESTRADIOL\ETONOGESTREL
     Dosage: 1 DF, QM/3 WEEKS OF USE AND 1 WEEK OF PAUSE
     Route: 067
     Dates: start: 20150317
  3. NUVARING [Suspect]
     Active Substance: ETHINYL ESTRADIOL\ETONOGESTREL
     Dosage: 1 DF, QM/3 WEEKS OF USE AND 1 WEEK OF PAUSE
     Route: 067
     Dates: start: 20150311, end: 20150315

REACTIONS (7)
  - Vulvovaginal injury [Recovered/Resolved]
  - Bacterial vaginosis [Unknown]
  - Device difficult to use [Unknown]
  - Inappropriate schedule of drug administration [Unknown]
  - Vulvovaginal discomfort [Recovered/Resolved]
  - Device breakage [Unknown]
  - Vaginal haemorrhage [Recovered/Resolved]

NARRATIVE: CASE EVENT DATE: 20150315
